FAERS Safety Report 6922366-0 (Version None)
Quarter: 2010Q3

REPORT INFORMATION
  Report Type: 
  Country: None (occurrence: None)
  Receive Date: 20100813
  Receipt Date: 20100802
  Transmission Date: 20110219
  Serious: Yes (Other)
  Sender: FDA-Public Use
  Company Number: US-BAYER-201028699NA

PATIENT
  Age: 37 Year
  Sex: Female

DRUGS (2)
  1. MIRENA [Suspect]
     Indication: CONTRACEPTION
     Dosage: FREQUENCY: CONTINUOUS
     Route: 015
     Dates: start: 20091013, end: 20091112
  2. MIRENA [Suspect]
     Dosage: FREQUENCY: CONTINUOUS
     Route: 015
     Dates: start: 20091112, end: 20100720

REACTIONS (5)
  - DEVICE DISLOCATION [None]
  - DEVICE EXPULSION [None]
  - METRORRHAGIA [None]
  - SEXUAL DYSFUNCTION [None]
  - VAGINAL HAEMORRHAGE [None]
